FAERS Safety Report 19082084 (Version 3)
Quarter: 2021Q2

REPORT INFORMATION
  Report Type: Spontaneous
  Country: US (occurrence: US)
  Receive Date: 20210401
  Receipt Date: 20210507
  Transmission Date: 20210717
  Serious: Yes (Other)
  Sender: FDA-Public Use
  Company Number: US-BAYER-2021-115790

PATIENT
  Age: 56 Year
  Sex: Female

DRUGS (2)
  1. OMNIPAQUE [Concomitant]
     Active Substance: IOHEXOL
     Dosage: UNK
     Dates: start: 20210213
  2. MIRENA [Suspect]
     Active Substance: LEVONORGESTREL
     Indication: CONTRACEPTION
     Dosage: 20 ?G PER DAY, CONTINUOUSLY
     Route: 015
     Dates: start: 202012

REACTIONS (2)
  - Embedded device [Not Recovered/Not Resolved]
  - Abdominal pain [None]

NARRATIVE: CASE EVENT DATE: 20210223
